FAERS Safety Report 7312814-9 (Version None)
Quarter: 2011Q1

REPORT INFORMATION
  Report Type: 
  Country: None (occurrence: None)
  Receive Date: 20110224
  Receipt Date: 20100204
  Transmission Date: 20110831
  Serious: No
  Sender: FDA-Public Use
  Company Number: US-MYLANLABS-2010S1001967

PATIENT
  Age: 42 Year
  Sex: Male

DRUGS (2)
  1. METOPROLOL TARTRATE [Suspect]
     Indication: BLOOD PRESSURE INCREASED
     Route: 048
     Dates: start: 20100117, end: 20100125
  2. METOPROLOL TARTRATE [Suspect]
     Route: 048
     Dates: start: 20100126

REACTIONS (2)
  - CHEST DISCOMFORT [None]
  - MUSCLE TWITCHING [None]
